FAERS Safety Report 7430917-5 (Version None)
Quarter: 2011Q2

REPORT INFORMATION
  Report Type: 
  Country: None (occurrence: None)
  Receive Date: 20110421
  Receipt Date: 20110404
  Transmission Date: 20111010
  Serious: No
  Sender: FDA-Public Use
  Company Number: US-B.I. PHARMACEUTICALS,INC./RIDGEFIELD-2011-BP-09968BP

PATIENT
  Sex: Male

DRUGS (5)
  1. PRADAXA [Suspect]
     Indication: ATRIAL FIBRILLATION
     Dosage: 150 MG
     Route: 048
     Dates: start: 20110331
  2. RED RICE YEAST EXTRACT [Concomitant]
     Indication: BLOOD CHOLESTEROL INCREASED
     Route: 048
  3. MEDICATION NOT FURTHER SPECIFIED [Concomitant]
     Indication: DIABETES MELLITUS
     Route: 048
  4. MEDROL [Concomitant]
     Indication: MUSCLE SPASMS
     Route: 048
  5. METOPROLOL [Concomitant]
     Indication: HYPERTENSION
     Dosage: 200 MG
     Route: 048

REACTIONS (3)
  - HAEMATOCHEZIA [None]
  - EPISTAXIS [None]
  - MALAISE [None]
